FAERS Safety Report 18158367 (Version 3)
Quarter: 2021Q1

REPORT INFORMATION
  Report Type: Spontaneous
  Country: US (occurrence: US)
  Receive Date: 20200817
  Receipt Date: 20210324
  Transmission Date: 20210419
  Serious: Yes (Death, Disabling, Other)
  Sender: FDA-Public Use
  Company Number: US-PURDUE-USA-2020-0160849

PATIENT
  Age: 33 Year
  Sex: Male

DRUGS (2)
  1. HYDROCODONE BITARTRATE (SIMILAR TO NDA 206627) [Suspect]
     Active Substance: HYDROCODONE BITARTRATE
     Indication: PAIN
     Dosage: UNKNOWN
     Route: 048
  2. HYDROCODONE BITARTRATE AND ACETAMINOPHEN [Suspect]
     Active Substance: ACETAMINOPHEN\HYDROCODONE BITARTRATE
     Indication: PAIN
     Dosage: UNKNOWN
     Route: 048

REACTIONS (7)
  - Accidental poisoning [Fatal]
  - Depression [Unknown]
  - Disability [Unknown]
  - Illness [Unknown]
  - Fatigue [Unknown]
  - Depressed mood [Unknown]
  - Aggression [Unknown]

NARRATIVE: CASE EVENT DATE: 20170713
